FAERS Safety Report 6683200-X (Version None)
Quarter: 2010Q2

REPORT INFORMATION
  Report Type: 
  Country: None (occurrence: None)
  Receive Date: 20100415
  Receipt Date: 20100406
  Transmission Date: 20101027
  Serious: Yes (Hospitalization)
  Sender: FDA-Public Use
  Company Number: TR-CELGENEUS-161-C5013-10040394

PATIENT
  Sex: Female
  Weight: 60 kg

DRUGS (1)
  1. CC-5013 [Suspect]
     Route: 048
     Dates: start: 20100114, end: 20100319

REACTIONS (1)
  - SKIN SWELLING [None]
